FAERS Safety Report 9399148 (Version 2)
Quarter: 2013Q4

REPORT INFORMATION
  Report Type: Spontaneous
  Country: JP (occurrence: JP)
  Receive Date: 20130715
  Receipt Date: 20131209
  Transmission Date: 20140711
  Serious: Yes (Other)
  Sender: FDA-Public Use
  Company Number: JP-AMGEN-JPNSP2013048924

PATIENT
  Age: 71 Year
  Sex: Male
  Weight: 53 kg

DRUGS (10)
  1. RANMARK [Suspect]
     Indication: PRODUCT USED FOR UNKNOWN INDICATION
     Route: 058
     Dates: start: 20130604, end: 20130604
  2. RANMARK [Suspect]
     Indication: METASTASES TO BONE
  3. CALCIUM CARBONATE [Concomitant]
  4. PARAPLATIN [Concomitant]
     Route: 041
     Dates: start: 20130522, end: 20130522
  5. VEPESID [Concomitant]
     Route: 041
     Dates: start: 20130522, end: 20130524
  6. NEXIUM                             /01479302/ [Concomitant]
     Route: 048
     Dates: start: 20130527
  7. HYPEN                              /00340101/ [Concomitant]
     Route: 048
     Dates: start: 20130430
  8. MUCOSTA [Concomitant]
     Route: 048
     Dates: start: 20130430
  9. OXYCONTIN [Concomitant]
     Route: 048
     Dates: start: 20130504
  10. MAGMITT [Concomitant]
     Route: 048
     Dates: start: 20130522

REACTIONS (1)
  - Hypocalcaemia [Recovered/Resolved]
